FAERS Safety Report 26186477 (Version 1)
Quarter: 2025Q4

REPORT INFORMATION
  Report Type: Spontaneous
  Country: US (occurrence: None)
  Receive Date: 20251219
  Receipt Date: 20251219
  Transmission Date: 20260117
  Serious: Yes (Hospitalization)
  Sender: FDA-CTU
  Company Number: None

PATIENT
  Age: 74 Year
  Sex: Male
  Weight: 58 kg

DRUGS (2)
  1. METHADONE HYDROCHLORIDE [Suspect]
     Active Substance: METHADONE HYDROCHLORIDE
     Indication: Pain
     Dosage: FREQUENCY : 3 TIMES A DAY;
     Route: 048
     Dates: start: 20250513, end: 20250607
  2. OXYCODONE [Suspect]
     Active Substance: OXYCODONE

REACTIONS (7)
  - Agitation [None]
  - Confusional state [None]
  - Hallucination [None]
  - Sedation [None]
  - Hypophagia [None]
  - Circadian rhythm sleep disorder [None]
  - Mental status changes [None]

NARRATIVE: CASE EVENT DATE: 20250605
